FAERS Safety Report 20658926 (Version 10)
Quarter: 2024Q3

REPORT INFORMATION
  Report Type: Report from Study
  Country: US (occurrence: US)
  Receive Date: 20220331
  Receipt Date: 20240722
  Transmission Date: 20241016
  Serious: Yes (Hospitalization, Other)
  Sender: XERIS PHARMACEUTICALS
  Company Number: US-XERIS PHARMACEUTICALS-2022XER00002

PATIENT
  Age: 46 Year
  Sex: Male
  Weight: 104.31 kg

DRUGS (23)
  1. KEVEYIS [Suspect]
     Active Substance: DICHLORPHENAMIDE
     Indication: Paralysis
     Dosage: 25 MG, 2X/DAY
     Route: 048
     Dates: start: 20190318, end: 2019
  2. KEVEYIS [Suspect]
     Active Substance: DICHLORPHENAMIDE
     Indication: Familial periodic paralysis
     Dosage: 1 AND 1/2 TABLET (75 MG), 2X/DAY
     Route: 048
     Dates: start: 20190830, end: 201908
  3. KEVEYIS [Suspect]
     Active Substance: DICHLORPHENAMIDE
     Dosage: 1/2 TABLET (25 MG), 2X/DAY (IN THE MORNING AND AFTERNOON)
     Route: 048
     Dates: start: 201908
  4. KEVEYIS [Suspect]
     Active Substance: DICHLORPHENAMIDE
     Dosage: 1/2 TABLET (25 MG), 2X/DAY (IN THE MORNING AND AFTERNOON)
     Route: 048
     Dates: start: 2022
  5. KEVEYIS [Suspect]
     Active Substance: DICHLORPHENAMIDE
     Dosage: 1/2 TABLET (25 MG), 2X/DAY
     Route: 048
     Dates: start: 2022
  6. KEVEYIS [Suspect]
     Active Substance: DICHLORPHENAMIDE
     Dosage: 1/2 TABLET (25 MG), 2X/DAY
     Route: 048
     Dates: start: 2022
  7. KEVEYIS [Suspect]
     Active Substance: DICHLORPHENAMIDE
     Dosage: 1/2 TABLET (25 MG), 2X/DAY
     Route: 048
  8. KEVEYIS [Suspect]
     Active Substance: DICHLORPHENAMIDE
     Dosage: 1/2 TABLET (25 MG), 2X/DAY
     Route: 048
  9. ACTOS [Suspect]
     Active Substance: PIOGLITAZONE HYDROCHLORIDE
     Dosage: UNK
  10. ASCORBIC ACID [Suspect]
     Active Substance: ASCORBIC ACID
     Dosage: UNK
     Dates: start: 202203
  11. UNSPECIFIED K+ INTAKE (POWDER) [Concomitant]
  12. UNSPECIFIED K+ INTAKE (LIQUID) [Concomitant]
  13. VITAMIN D [Concomitant]
     Active Substance: VITAMIN D NOS
  14. ATENOLOL [Concomitant]
     Active Substance: ATENOLOL
  15. ATORVASTATIN [Concomitant]
     Active Substance: ATORVASTATIN
  16. ALLOPURINOL [Concomitant]
     Active Substance: ALLOPURINOL
  17. MONTELUKAST SODIUM [Concomitant]
     Active Substance: MONTELUKAST SODIUM
  18. LORATADINE [Concomitant]
     Active Substance: LORATADINE
  19. POTASSIUM BICARB [Concomitant]
  20. POTASSIUM CITRATE [Concomitant]
     Active Substance: POTASSIUM CITRATE
  21. POTASSIUM CHLORIDE [Concomitant]
     Active Substance: POTASSIUM CHLORIDE
  22. METFORMIN [Concomitant]
     Active Substance: METFORMIN HYDROCHLORIDE
  23. JARDIANCE [Concomitant]
     Active Substance: EMPAGLIFLOZIN

REACTIONS (15)
  - Metabolic alkalosis [Not Recovered/Not Resolved]
  - Renal tubular acidosis [Not Recovered/Not Resolved]
  - Pyrexia [Unknown]
  - Electrolyte imbalance [Unknown]
  - Paralysis [Recovering/Resolving]
  - Nephrolithiasis [Recovering/Resolving]
  - Hypokalaemia [Not Recovered/Not Resolved]
  - Back pain [Recovering/Resolving]
  - Abdominal discomfort [Unknown]
  - Tinnitus [Recovering/Resolving]
  - COVID-19 [Recovering/Resolving]
  - Feeling abnormal [Not Recovered/Not Resolved]
  - Sensitivity to weather change [Recovered/Resolved]
  - Blood glucose increased [Unknown]
  - Asthenia [Not Recovered/Not Resolved]

NARRATIVE: CASE EVENT DATE: 20190501
